FAERS Safety Report 5668738-6 (Version None)
Quarter: 2008Q1

REPORT INFORMATION
  Report Type: 
  Country: None (occurrence: None)
  Receive Date: 20080312
  Receipt Date: 20080312
  Transmission Date: 20080703
  Serious: Yes (Hospitalization)
  Sender: FDA-Public Use
  Company Number: None

PATIENT
  Sex: Female
  Weight: 75.91 kg

DRUGS (1)
  1. PACLITAXEL [Suspect]
     Dosage: 543 MG

REACTIONS (1)
  - VOMITING [None]
